FAERS Safety Report 20056982 (Version 1)
Quarter: 2021Q4

REPORT INFORMATION
  Report Type: Spontaneous
  Country: BG (occurrence: None)
  Receive Date: 20211111
  Receipt Date: 20211111
  Transmission Date: 20220304
  Serious: Yes (Other)
  Sender: FDA-Public Use
  Company Number: BG-Orion Corporation ORION PHARMA-ENTC2021-0287

PATIENT
  Age: 78 Year
  Sex: Female

DRUGS (2)
  1. STALEVO [Suspect]
     Active Substance: CARBIDOPA\ENTACAPONE\LEVODOPA
     Indication: Parkinson^s disease
     Dosage: STRENGTH: 200/50/200 MG; 100/25/200 MG
     Route: 065
     Dates: start: 202007, end: 202103
  2. LEVODOPA BENSERAZIDE HBS [Concomitant]
     Dosage: STRENGTH: 100/25 MG?2 CAPS
     Route: 065
     Dates: start: 201706, end: 202007

REACTIONS (4)
  - Parkinson^s disease [Unknown]
  - Vomiting [Unknown]
  - Dyskinesia [Unknown]
  - Weight decreased [Unknown]
